FAERS Safety Report 8347356-5 (Version None)
Quarter: 2012Q2

REPORT INFORMATION
  Report Type: 
  Country: None (occurrence: None)
  Receive Date: 20120509
  Receipt Date: 20120504
  Transmission Date: 20120825
  Serious: No
  Sender: FDA-Public Use
  Company Number: US-PFIZER INC-2012110855

PATIENT
  Sex: Male
  Weight: 10.4 kg

DRUGS (14)
  1. GENOTROPIN [Suspect]
     Dosage: 0.4 MG, 1X/DAY
     Route: 058
     Dates: start: 20120301
  2. LANSOPRAZOLE [Concomitant]
     Dosage: 3 MG/ML, UNK
  3. CARNITOR [Concomitant]
     Dosage: 330 MG, UNK
  4. NASONEX [Concomitant]
     Dosage: 50 MCG PER AC
  5. LOVAZA [Concomitant]
     Dosage: UNK
  6. FLINTSTONES MULTIPLE VITAMINS [Concomitant]
     Dosage: UNK
  7. SODIUM CHLORIDE [Concomitant]
     Dosage: 0.9 %, UNK
  8. XOPENEX [Concomitant]
     Dosage: UNK
  9. PULMICORT [Concomitant]
     Dosage: 0.25MG/2, UNK
  10. SINGULAIR [Concomitant]
     Dosage: 5 MG, UNK
  11. SYNTHROID [Concomitant]
     Dosage: 25 UG, UNK
  12. PERFOROMIST [Concomitant]
     Dosage: 20 UG, UNK
  13. CALCIUM CARBONATE [Concomitant]
     Dosage: 10 G, UNK
  14. ZYRTEC [Concomitant]
     Dosage: 5 MG, UNK

REACTIONS (2)
  - INJECTION SITE PAIN [None]
  - PYREXIA [None]
